FAERS Safety Report 5060334-7 (Version None)
Quarter: 2006Q3

REPORT INFORMATION
  Report Type: 
  Country: None (occurrence: None)
  Receive Date: 20060718
  Receipt Date: 20060627
  Transmission Date: 20061208
  Serious: Yes (Hospitalization, Disabling, Other)
  Sender: FDA-Public Use
  Company Number: US200606005815

PATIENT
  Age: 57 Year
  Sex: Female

DRUGS (8)
  1. HUMULIN 70/30 [Suspect]
     Indication: DIABETES MELLITUS INSULIN-DEPENDENT
     Dates: start: 19930101, end: 20030101
  2. HUMALOG [Suspect]
     Indication: DIABETES MELLITUS INSULIN-DEPENDENT
  3. HUMULIN R [Suspect]
     Indication: DIABETES MELLITUS INSULIN-DEPENDENT
     Dates: start: 20030101
  4. FORTEO [Suspect]
     Indication: OSTEOPOROSIS
     Dates: start: 20060612, end: 20060601
  5. FORTEO [Suspect]
     Indication: OSTEOPOROSIS
     Dates: start: 20060625
  6. HUMULIN 70/30 PEN (HUMULIN 70/30 PEN) PEN,DISPOSABLE [Concomitant]
  7. FORTEO PEN (250MCG/ML) (FORTEO PEN 250MCG/ML) ) PEN,DISPOSABLE [Concomitant]
  8. LANTUS [Concomitant]

REACTIONS (29)
  - ASTHMA [None]
  - AUTOIMMUNE THYROIDITIS [None]
  - BLISTER [None]
  - BLOOD ALKALINE PHOSPHATASE INCREASED [None]
  - BLOOD CALCIUM INCREASED [None]
  - BLOOD GLUCOSE INCREASED [None]
  - BLOOD PRESSURE DECREASED [None]
  - CEREBROVASCULAR ACCIDENT [None]
  - CHEST PAIN [None]
  - COMA [None]
  - CONTUSION [None]
  - DYSGEUSIA [None]
  - DYSPNOEA [None]
  - FIBROMYALGIA [None]
  - INFLUENZA [None]
  - INSOMNIA [None]
  - KIDNEY INFECTION [None]
  - LEG AMPUTATION [None]
  - LIMB INJURY [None]
  - LOCALISED INFECTION [None]
  - MUSCLE SPASMS [None]
  - OEDEMA PERIPHERAL [None]
  - OSTEOMYELITIS [None]
  - OSTEOPOROSIS [None]
  - PHARMACEUTICAL PRODUCT COMPLAINT [None]
  - POST PROCEDURAL COMPLICATION [None]
  - PROCEDURAL PAIN [None]
  - RENAL IMPAIRMENT [None]
  - SWELLING FACE [None]
